FAERS Safety Report 4655910-7 (Version None)
Quarter: 2005Q2

REPORT INFORMATION
  Report Type: 
  Country: None (occurrence: None)
  Receive Date: 20050509
  Receipt Date: 20050322
  Transmission Date: 20051028
  Serious: Yes (Hospitalization)
  Sender: FDA-Public Use
  Company Number: 200511042FR

PATIENT
  Age: 55 Year
  Sex: Female

DRUGS (7)
  1. ARAVA [Suspect]
     Indication: RHEUMATOID ARTHRITIS
     Route: 048
     Dates: start: 20000901, end: 20050315
  2. CELEBREX [Suspect]
     Indication: RHEUMATOID ARTHRITIS
     Route: 048
     Dates: start: 20020415
  3. TOPALGIC [Suspect]
     Route: 048
     Dates: start: 20031201
  4. DOLIPRANE [Suspect]
     Route: 048
     Dates: start: 20031201
  5. MOPRAL [Concomitant]
  6. CLIMASTON [Concomitant]
     Route: 048
  7. APRANAX [Concomitant]
     Indication: RHEUMATOID ARTHRITIS
     Route: 048
     Dates: start: 20000901, end: 20010901

REACTIONS (7)
  - CONDITION AGGRAVATED [None]
  - DIFFUSE LARGE B-CELL LYMPHOMA [None]
  - FELTY'S SYNDROME [None]
  - LUNG DISORDER [None]
  - LUNG INFECTION [None]
  - PAROTID GLAND ENLARGEMENT [None]
  - WHITE BLOOD CELL COUNT DECREASED [None]
